FAERS Safety Report 6610253-7 (Version None)
Quarter: 2010Q1

REPORT INFORMATION
  Report Type: 
  Country: None (occurrence: None)
  Receive Date: 20100302
  Receipt Date: 20100224
  Transmission Date: 20100710
  Serious: Yes (Hospitalization)
  Sender: FDA-Public Use
  Company Number: JP-MERCK-1002USA02417

PATIENT
  Age: 76 Year
  Sex: Female

DRUGS (5)
  1. HYZAAR [Suspect]
     Indication: HYPERTENSION
     Route: 048
     Dates: start: 20100204, end: 20100207
  2. NORVASC [Suspect]
     Indication: HYPERTENSION
     Route: 048
     Dates: start: 20100119, end: 20100208
  3. TAKEPRON [Suspect]
     Indication: PROPHYLAXIS AGAINST GASTROINTESTINAL ULCER
     Route: 048
     Dates: start: 20100119, end: 20100207
  4. IRBETAN [Suspect]
     Indication: HYPERTENSION
     Route: 048
     Dates: start: 20100122, end: 20100203
  5. DICHLOTRIDE [Suspect]
     Indication: HYPERTENSION
     Route: 048
     Dates: start: 20100123, end: 20100203

REACTIONS (1)
  - DRUG ERUPTION [None]
